FAERS Safety Report 7131539-6 (Version None)
Quarter: 2010Q4

REPORT INFORMATION
  Report Type: 
  Country: None (occurrence: None)
  Receive Date: 20101201
  Receipt Date: 20101129
  Transmission Date: 20110411
  Serious: Yes (Disabling, Other)
  Sender: FDA-Public Use
  Company Number: AU-PFIZER INC-2010098720

PATIENT
  Age: 30 Year
  Sex: Female
  Weight: 59 kg

DRUGS (2)
  1. CHANTIX [Suspect]
     Indication: SMOKING CESSATION THERAPY
     Dosage: 1 MG, 1X/DAY
     Route: 048
     Dates: start: 20100604, end: 20100713
  2. XANAX [Concomitant]
     Indication: PANIC ATTACK
     Dosage: 0.5 MG, 1X/DAY
     Route: 048
     Dates: start: 20100305

REACTIONS (6)
  - ANGER [None]
  - DEREALISATION [None]
  - HALLUCINATION [None]
  - INSOMNIA [None]
  - PARANOIA [None]
  - PSYCHOTIC DISORDER [None]
